FAERS Safety Report 4636526-5 (Version None)
Quarter: 2005Q2

REPORT INFORMATION
  Report Type: 
  Country: None (occurrence: None)
  Receive Date: 20050415
  Receipt Date: 20050406
  Transmission Date: 20051028
  Serious: Yes (Other)
  Sender: FDA-Public Use
  Company Number: US-GLAXOSMITHKLINE-A0553016A

PATIENT
  Age: 13 Month
  Sex: Female

DRUGS (2)
  1. LAMICTAL [Suspect]
     Indication: CONVULSION
     Dosage: 15MG TWICE PER DAY
     Route: 048
     Dates: start: 20040727
  2. NO CONCURRENT MEDICATION [Concomitant]

REACTIONS (7)
  - CONJUNCTIVITIS [None]
  - COUGH [None]
  - EYE DISORDER [None]
  - EYE HAEMORRHAGE [None]
  - INCREASED UPPER AIRWAY SECRETION [None]
  - SNORING [None]
  - WHEEZING [None]
